FAERS Safety Report 9714220 (Version 1)
Quarter: 2013Q4

REPORT INFORMATION
  Report Type: Spontaneous
  Country: US (occurrence: US)
  Receive Date: 20131126
  Receipt Date: 20131126
  Transmission Date: 20140711
  Serious: No
  Sender: FDA-Public Use
  Company Number: US-GILEAD-2008-0019440

PATIENT
  Sex: Female
  Weight: 53.52 kg

DRUGS (13)
  1. LETAIRIS [Suspect]
     Route: 048
     Dates: start: 20081205
  2. PLAVIX [Concomitant]
  3. CADUET [Concomitant]
  4. ASPIRIN [Concomitant]
  5. XOPENEX [Concomitant]
  6. ALBUTEROL INHALER [Concomitant]
  7. SPIRIVA HANDIHALER [Concomitant]
  8. VISTARIL [Concomitant]
  9. NEURONTIN [Concomitant]
  10. TYLENOL EX-STRENGTH [Concomitant]
  11. LEXAPRO [Concomitant]
  12. MOTRIN [Concomitant]
  13. TRANXENEN-T [Concomitant]

REACTIONS (2)
  - Fatigue [None]
  - Dyspnoea [None]
